FAERS Safety Report 10016807 (Version 2)
Quarter: 2014Q1

REPORT INFORMATION
  Report Type: Spontaneous
  Country: JP (occurrence: JP)
  Receive Date: 20140318
  Receipt Date: 20140318
  Transmission Date: 20141002
  Serious: Yes (Death, Other)
  Sender: FDA-Public Use
  Company Number: PHHY2014JP023665

PATIENT
  Sex: 0

DRUGS (9)
  1. HYDRALAZINE [Suspect]
     Route: 064
  2. METHYLDOPA [Suspect]
     Dosage: UNK
     Route: 064
  3. TELMISARTAN [Suspect]
     Route: 064
  4. AMLODIPINE [Suspect]
     Route: 064
  5. NIFEDIPINE [Suspect]
     Route: 064
  6. INSULIN [Suspect]
     Route: 064
  7. HYDROCORTISONE [Suspect]
     Route: 064
  8. HYDROCORTISONE SODIUM SUCCINATE [Suspect]
     Route: 064
  9. NICARDIPINE [Suspect]
     Route: 064

REACTIONS (4)
  - Foetal death [Fatal]
  - Foetal heart rate deceleration abnormality [Unknown]
  - Premature baby [Unknown]
  - Foetal exposure during pregnancy [Unknown]
